FAERS Safety Report 25029804 (Version 2)
Quarter: 2025Q2

REPORT INFORMATION
  Report Type: Spontaneous
  Country: JP (occurrence: JP)
  Receive Date: 20250303
  Receipt Date: 20250407
  Transmission Date: 20250716
  Serious: Yes (Death, Other)
  Sender: GLAXOSMITHKLINE
  Company Number: JP-GSK-JP2025JPN024912

PATIENT

DRUGS (1)
  1. DAPRODUSTAT [Suspect]
     Active Substance: DAPRODUSTAT
     Indication: Nephrogenic anaemia
     Route: 048
     Dates: start: 202411

REACTIONS (1)
  - Drowning [Fatal]

NARRATIVE: CASE EVENT DATE: 20250101
